FAERS Safety Report 13874004 (Version 1)
Quarter: 2017Q3

REPORT INFORMATION
  Report Type: Spontaneous
  Country: US (occurrence: US)
  Receive Date: 20170816
  Receipt Date: 20170816
  Transmission Date: 20171127
  Serious: Yes (Other)
  Sender: FDA-Public Use
  Company Number: US-PRODUCTLIFE GROUP-GTC2012000013

PATIENT
  Age: 4 Month
  Sex: Female
  Weight: 4.5 kg

DRUGS (17)
  1. ATRYN [Suspect]
     Active Substance: ANTITHROMBIN ALFA
     Dosage: 100 IU, BOLUS
     Route: 042
     Dates: start: 20120218, end: 20120218
  2. HEPARIN [Concomitant]
     Active Substance: HEPARIN SODIUM
     Dosage: 225 IU, BOLUS (50 IU/KG)
     Route: 042
     Dates: start: 20120218, end: 20120218
  3. HEPARIN [Concomitant]
     Active Substance: HEPARIN SODIUM
     Dosage: UNK
  4. HEPARIN [Concomitant]
     Active Substance: HEPARIN SODIUM
     Dosage: 22 IU/KG/HR
     Route: 042
     Dates: start: 20120216
  5. ATRYN [Suspect]
     Active Substance: ANTITHROMBIN ALFA
     Indication: OFF LABEL USE
     Dosage: 22 IU/HR
     Route: 042
     Dates: start: 20120217
  6. ATRYN [Suspect]
     Active Substance: ANTITHROMBIN ALFA
     Indication: DRUG ADMINISTERED TO PATIENT OF INAPPROPRIATE AGE
     Dosage: 150 IU, BOLUS
     Route: 042
     Dates: start: 20120217, end: 20120217
  7. ATRYN [Suspect]
     Active Substance: ANTITHROMBIN ALFA
     Dosage: 28 IU/HR
     Route: 042
     Dates: start: 20120218
  8. HEPARIN [Concomitant]
     Active Substance: HEPARIN SODIUM
     Dosage: 35 IU/KG/HR
     Route: 042
     Dates: start: 20120218
  9. ATRYN [Suspect]
     Active Substance: ANTITHROMBIN ALFA
     Indication: CARDIAC OPERATION
     Dosage: 150 IU, BOLUS
     Route: 042
     Dates: start: 20120217, end: 20120217
  10. HEPARIN [Concomitant]
     Active Substance: HEPARIN SODIUM
     Dosage: 15 IU/KG/HR
     Route: 042
     Dates: start: 20120216
  11. HEPARIN [Concomitant]
     Active Substance: HEPARIN SODIUM
     Dosage: 20 IU/KG/HR
     Route: 042
     Dates: start: 20120216
  12. HEPARIN [Concomitant]
     Active Substance: HEPARIN SODIUM
     Dosage: 24 IU/KG/HR
     Route: 042
     Dates: start: 20120217
  13. HEPARIN [Concomitant]
     Active Substance: HEPARIN SODIUM
     Dosage: 28 IU/KG/HR
     Route: 042
     Dates: start: 20120217
  14. ATRYN [Suspect]
     Active Substance: ANTITHROMBIN ALFA
     Dosage: 28 IU/HR
     Route: 042
     Dates: start: 20120218
  15. HEPARIN [Concomitant]
     Active Substance: HEPARIN SODIUM
     Dosage: 450 IU, BOLUS (100 IU/KG)
     Route: 042
     Dates: start: 20120216, end: 20120216
  16. HEPARIN [Concomitant]
     Active Substance: HEPARIN SODIUM
     Dosage: 32 IU/KG/HR
     Route: 042
     Dates: start: 20120217
  17. HEPARIN [Concomitant]
     Active Substance: HEPARIN SODIUM
     Dosage: 40 IU/KG/HR
     Route: 042
     Dates: start: 20120218, end: 20120218

REACTIONS (2)
  - Drug ineffective for unapproved indication [Recovered/Resolved]
  - Off label use [Unknown]

NARRATIVE: CASE EVENT DATE: 20120216
